FAERS Safety Report 6117112-7 (Version None)
Quarter: 2009Q1

REPORT INFORMATION
  Report Type: 
  Country: None (occurrence: None)
  Receive Date: 20090314
  Receipt Date: 20090106
  Transmission Date: 20090719
  Serious: No
  Sender: FDA-Public Use
  Company Number: US-ABBOTT-09P-163-0496332-00

PATIENT
  Sex: Female

DRUGS (1)
  1. HUMIRA [Suspect]
     Indication: PSORIATIC ARTHROPATHY
     Dates: start: 20080801

REACTIONS (6)
  - DECREASED APPETITE [None]
  - DIZZINESS [None]
  - NASOPHARYNGITIS [None]
  - RASH [None]
  - URTICARIA [None]
  - WEIGHT DECREASED [None]
